FAERS Safety Report 15589683 (Version 1)
Quarter: 2018Q4

REPORT INFORMATION
  Report Type: Other
  Country: GB (occurrence: GB)
  Receive Date: 20181106
  Receipt Date: 20181106
  Transmission Date: 20190205
  Serious: Yes (Death, Hospitalization, Other)
  Sender: FDA-Public Use
  Company Number: GB-MACLEODS PHARMACEUTICALS US LTD-MAC2018018479

PATIENT

DRUGS (26)
  1. CLOPIDOGREL [Suspect]
     Active Substance: CLOPIDOGREL BISULFATE
     Indication: ANTIPLATELET THERAPY
     Dosage: 75 MILLIGRAM, QD,
     Route: 048
     Dates: start: 19990121, end: 20020802
  2. EPREX [Suspect]
     Active Substance: ERYTHROPOIETIN
     Indication: ANAEMIA
     Dosage: 2000 INTERNATIONAL UNIT, Q.W.
     Route: 058
     Dates: start: 20020724, end: 20020802
  3. SIMVASTATIN. [Concomitant]
     Active Substance: SIMVASTATIN
     Indication: HYPERCHOLESTEROLAEMIA
     Dosage: 10 MILLIGRAM, QD, ONGOING
     Route: 048
     Dates: start: 19960502
  4. EPREX [Suspect]
     Active Substance: ERYTHROPOIETIN
     Dosage: 2000 UNK
     Route: 058
     Dates: start: 20011001, end: 20020723
  5. CODEINE [Concomitant]
     Active Substance: CODEINE
     Indication: DIARRHOEA
     Dosage: UNK UNK, QD, DOSAGE FORM: UNKNOWN
     Route: 048
     Dates: start: 20040428
  6. DEFERIPRONE [Concomitant]
     Active Substance: DEFERIPRONE
     Indication: HYPERAESTHESIA
     Dosage: 1 GRAM, QD
     Route: 048
     Dates: start: 20050204, end: 20050223
  7. DOXAZOSIN [Concomitant]
     Active Substance: DOXAZOSIN\DOXAZOSIN MESYLATE
     Dosage: 8 MILLIGRAM, QD
     Route: 048
     Dates: start: 19960101
  8. DOXAZOSIN [Concomitant]
     Active Substance: DOXAZOSIN\DOXAZOSIN MESYLATE
     Dosage: 4 MILLIGRAM, QD
     Route: 048
     Dates: start: 19960101
  9. AMOXICILLIN. [Concomitant]
     Active Substance: AMOXICILLIN
     Indication: PNEUMONIA
     Dosage: UNK
     Route: 065
     Dates: start: 20050604
  10. DEFERIPRONE [Concomitant]
     Active Substance: DEFERIPRONE
     Indication: PRODUCT USED FOR UNKNOWN INDICATION
     Dosage: 500 MILLIGRAM, QD
     Route: 048
     Dates: start: 20050204, end: 20050223
  11. FRUSEMIDE [Concomitant]
     Active Substance: FUROSEMIDE
     Indication: HYPERTENSION
     Dosage: 80 MILLIGRAM, QD, 40MG INCREASED TO 80MG, DECREASED TO 40MG, THEN 40MG BD AND FINALLY 40MG
     Route: 048
     Dates: start: 20000511
  12. OMEPRAZOLE 20 MG [Concomitant]
     Active Substance: OMEPRAZOLE
     Indication: VOMITING
     Dosage: 20 MILLIGRAM, QD
     Route: 048
     Dates: start: 20050110
  13. PARACETAMOL [Concomitant]
     Active Substance: ACETAMINOPHEN
     Indication: HEADACHE
     Dosage: 1 GRAM, QD,
     Route: 048
     Dates: start: 20050510
  14. BISOPROLOL FUMARATE. [Concomitant]
     Active Substance: BISOPROLOL FUMARATE
     Indication: PRODUCT USED FOR UNKNOWN INDICATION
     Dosage: 5 MILLIGRAM, QD
     Route: 048
  15. DOXAZOSIN [Concomitant]
     Active Substance: DOXAZOSIN\DOXAZOSIN MESYLATE
     Indication: HYPERTENSION
     Dosage: 6 MILLIGRAM, QD, 8MG, DECREASED TO 4MG, INCREASED TO 6MG, THEN 8MG
     Route: 048
     Dates: start: 19960101, end: 20040726
  16. FRUSEMIDE [Concomitant]
     Active Substance: FUROSEMIDE
     Dosage: 40 MILLIGRAM, QD
     Route: 048
     Dates: start: 20000511
  17. HYDRALAZINE HYDROCHLORIDE. [Concomitant]
     Active Substance: HYDRALAZINE HYDROCHLORIDE
     Indication: PRODUCT USED FOR UNKNOWN INDICATION
     Dosage: 25 MILLIGRAM, QD
     Route: 048
     Dates: start: 20050531
  18. CIPROFLOXACIN. [Concomitant]
     Active Substance: CIPROFLOXACIN
     Indication: PNEUMONIA
     Dosage: UNK
     Route: 065
  19. ALFACALCIDOL [Concomitant]
     Active Substance: ALFACALCIDOL
     Indication: HYPERPARATHYROIDISM
     Dosage: 250 NG, QD
     Route: 065
     Dates: start: 20010927
  20. FRUSEMIDE [Concomitant]
     Active Substance: FUROSEMIDE
     Dosage: 40 MILLIGRAM, QD (DOSAGE FORM: UNSPECIFIED,
     Route: 048
     Dates: start: 20000511
  21. VANCOMYCIN [Concomitant]
     Active Substance: VANCOMYCIN
     Indication: DIARRHOEA
     Dosage: 125 MILLIGRAM, QD
     Route: 048
     Dates: start: 20050726
  22. METRONIDAZOLE. [Concomitant]
     Active Substance: METRONIDAZOLE
     Indication: DIARRHOEA
     Dosage: 400 MILLIGRAM, QD
     Route: 048
     Dates: start: 20050628
  23. DEFEROXAMINE MESILATE [Concomitant]
     Active Substance: DEFEROXAMINE MESYLATE
     Indication: CHELATION THERAPY
     Dosage: UNK, WITH TRANSFUSIONS
     Route: 042
     Dates: start: 200404
  24. AMLODIPINE BESYLATE. [Concomitant]
     Active Substance: AMLODIPINE BESYLATE
     Indication: HYPERTENSION
     Dosage: 5 MILLIGRAM, QD,
     Route: 048
     Dates: start: 20020624, end: 20040726
  25. ATENOLOL. [Concomitant]
     Active Substance: ATENOLOL
     Indication: ANGINA PECTORIS
     Dosage: 25 MILLIGRAM, QD,
     Route: 048
     Dates: start: 19981101
  26. TRANDOLAPRIL. [Concomitant]
     Active Substance: TRANDOLAPRIL
     Indication: HYPERTENSION
     Dosage: 1 MILLIGRAM, QD
     Route: 048
     Dates: start: 20050710

REACTIONS (24)
  - Headache [Not Recovered/Not Resolved]
  - Hypertension [Not Recovered/Not Resolved]
  - Muscle atrophy [Unknown]
  - Pain in extremity [Unknown]
  - Blood creatine increased [Recovered/Resolved]
  - Asthenia [Unknown]
  - Dizziness [Not Recovered/Not Resolved]
  - Tremor [Unknown]
  - Hyperaesthesia [Not Recovered/Not Resolved]
  - Tendonitis [Not Recovered/Not Resolved]
  - Fatigue [Not Recovered/Not Resolved]
  - Hiccups [Recovered/Resolved]
  - Arthralgia [Unknown]
  - Haemorrhoids [Not Recovered/Not Resolved]
  - Blood pressure increased [Recovered/Resolved]
  - Anti-erythropoietin antibody positive [Unknown]
  - Drug ineffective [Unknown]
  - Purpura [Unknown]
  - Diarrhoea [Not Recovered/Not Resolved]
  - Joint swelling [Recovered/Resolved]
  - Hyperaesthesia [Unknown]
  - Pneumonia [Fatal]
  - Aplasia pure red cell [Not Recovered/Not Resolved]
  - Contusion [Not Recovered/Not Resolved]

NARRATIVE: CASE EVENT DATE: 200205
